FAERS Safety Report 17010219 (Version 1)
Quarter: 2019Q4

REPORT INFORMATION
  Report Type: Report from Study
  Country: US (occurrence: US)
  Receive Date: 20191108
  Receipt Date: 20191108
  Transmission Date: 20200122
  Serious: Yes (Other)
  Sender: FDA-Public Use
  Company Number: US-ROCHE-2455763

PATIENT
  Sex: Male
  Weight: 140.74 kg

DRUGS (1)
  1. XOLAIR [Suspect]
     Active Substance: OMALIZUMAB
     Indication: ASTHMA
     Dosage: 2 SHOTS ONE IN EACH ARM UNDER THE SKIN ; ONGOING: NO
     Route: 065

REACTIONS (2)
  - Prostatic disorder [Unknown]
  - Anaphylactic reaction [Unknown]
